FAERS Safety Report 25019043 (Version 2)
Quarter: 2025Q1

REPORT INFORMATION
  Report Type: Spontaneous
  Country: DE (occurrence: DE)
  Receive Date: 20250227
  Receipt Date: 20250317
  Transmission Date: 20250409
  Serious: Yes (Hospitalization, Other)
  Sender: ALEXION PHARMACEUTICALS
  Company Number: 6000008289-001

PATIENT
  Age: 35 Year

DRUGS (6)
  1. SEROQUEL [Suspect]
     Active Substance: QUETIAPINE FUMARATE
     Indication: Schizophrenia
     Dosage: 400 MILLIGRAM, QD
  2. SEROQUEL [Suspect]
     Active Substance: QUETIAPINE FUMARATE
     Dosage: UNK UNK, QD
  3. ZOLOFT [Suspect]
     Active Substance: SERTRALINE HYDROCHLORIDE
     Dosage: 50 MILLIGRAM, QD
  4. MELPERONE HYDROCHLORIDE [Suspect]
     Active Substance: MELPERONE HYDROCHLORIDE
     Dosage: UNK UNK, QD
  5. Tavor [Concomitant]
     Dosage: UNK UNK, QD
  6. Tavor [Concomitant]
     Dosage: UNK UNK, QD

REACTIONS (3)
  - Generalised tonic-clonic seizure [Recovered/Resolved]
  - Multiple fractures [Recovered/Resolved]
  - Fall [Recovered/Resolved]
